FAERS Safety Report 4587501-0 (Version None)
Quarter: 2005Q1

REPORT INFORMATION
  Report Type: 
  Country: None (occurrence: None)
  Receive Date: 20050215
  Receipt Date: 20050208
  Transmission Date: 20050727
  Serious: Yes (Hospitalization)
  Sender: FDA-Public Use
  Company Number: K200500196

PATIENT
  Age: 68 Year
  Sex: Male

DRUGS (7)
  1. ALTACE [Suspect]
     Indication: ESSENTIAL HYPERTENSION
     Dosage: 2.5 MG, BID, ORAL
     Route: 048
  2. AMAREL (GLIMEPIRIDE) TABLET, 2U [Suspect]
     Indication: DIABETES MELLITUS
     Dosage: 2 U, QD, ORAL
     Route: 048
     Dates: end: 20041212
  3. ALDACTONE (SPIRONOLACTONE) TABLET, 12MG [Suspect]
     Indication: ESSENTIAL HYPERTENSION
     Dosage: 12 MG, QD, ORAL
     Route: 048
     Dates: start: 20020101, end: 20041213
  4. DETENSIEL (BISOPROLOL) TABLET, 10MG [Suspect]
     Indication: ESSENTIAL HYPERTENSION
     Dosage: 10 MG, QD, ORAL
     Route: 048
  5. DEROXAT (PAROXETINE HYDROCHLORIDE) TABLET, 20MG [Suspect]
     Indication: DYSTHYMIC DISORDER
     Dosage: 20 MG, QD, ORAL
     Route: 048
  6. TRINIPATCH (GLYCERYL TRINITRATE) [Suspect]
     Dosage: 10 MG, QD, TOPICAL
     Route: 061
     Dates: start: 20020101, end: 20041213
  7. ZOCOR [Concomitant]

REACTIONS (6)
  - CAROTID ARTERY STENOSIS [None]
  - DIABETES MELLITUS INADEQUATE CONTROL [None]
  - FALL [None]
  - HOT FLUSH [None]
  - MALAISE [None]
  - ORTHOSTATIC HYPOTENSION [None]
